FAERS Safety Report 8833198 (Version 2)
Quarter: 2012Q4

REPORT INFORMATION
  Report Type: 
  Country: US (occurrence: US)
  Receive Date: 20121010
  Receipt Date: 20121120
  Transmission Date: 20130627
  Serious: No
  Sender: FDA-Public Use
  Company Number: US-PFIZER INC-2012246642

PATIENT
  Age: 60 Year
  Sex: Female
  Weight: 45.35 kg

DRUGS (4)
  1. PREMARIN [Suspect]
     Indication: VAGINAL DRYNESS
     Dosage: UNK, once a day
     Route: 067
     Dates: start: 201204
  2. VERAMYST [Concomitant]
     Dosage: UNK
  3. SYMBICORT [Concomitant]
     Dosage: UNK
  4. FLONASE [Concomitant]
     Dosage: UNK

REACTIONS (2)
  - Vulvovaginal discomfort [Unknown]
  - Vulvovaginal pain [Unknown]
